FAERS Safety Report 15426000 (Version 3)
Quarter: 2019Q2

REPORT INFORMATION
  Report Type: Spontaneous
  Country: DE (occurrence: DE)
  Receive Date: 20180925
  Receipt Date: 20190617
  Transmission Date: 20190711
  Serious: Yes (Death, Life-Threatening, Hospitalization, Congenital Anomaly, Other)
  Sender: FDA-Public Use
  Company Number: PHHY2018DE105984

PATIENT
  Age: 1 Day
  Sex: Male

DRUGS (3)
  1. LISIHEXAL [Suspect]
     Active Substance: LISINOPRIL
     Indication: FOETAL EXPOSURE DURING PREGNANCY
     Dosage: MATERNAL DOSE 1 DF, QD
     Route: 064
     Dates: end: 201809
  2. COTRIMOXAZOL [Concomitant]
     Active Substance: SULFAMETHOXAZOLE\TRIMETHOPRIM
     Indication: FOETAL EXPOSURE DURING PREGNANCY
     Dosage: UNK
     Route: 064
  3. BISOPROLOL [Concomitant]
     Active Substance: BISOPROLOL
     Indication: FOETAL EXPOSURE DURING PREGNANCY
     Dosage: MATERNAL DOSE: 10 MG, QD
     Route: 064
     Dates: end: 201809

REACTIONS (21)
  - Renal failure [Fatal]
  - Pneumothorax [Unknown]
  - Renal dysplasia [Fatal]
  - Foot deformity [Not Recovered/Not Resolved]
  - Death neonatal [Fatal]
  - Pulmonary hypertension [Unknown]
  - Anomaly of external ear congenital [Not Recovered/Not Resolved]
  - Neonatal anuria [Not Recovered/Not Resolved]
  - Newborn persistent pulmonary hypertension [Not Recovered/Not Resolved]
  - Deformity thorax [Not Recovered/Not Resolved]
  - Atrial septal defect [Not Recovered/Not Resolved]
  - Neonatal respiratory failure [Fatal]
  - Congenital foot malformation [Unknown]
  - Cataract congenital [Not Recovered/Not Resolved]
  - Foetal exposure during pregnancy [Unknown]
  - Neonatal disorder [Unknown]
  - Renal failure neonatal [Fatal]
  - Pulmonary hypoplasia [Fatal]
  - Renal aplasia [Unknown]
  - Hypocalvaria [Not Recovered/Not Resolved]
  - Premature baby [Recovered/Resolved]

NARRATIVE: CASE EVENT DATE: 20180904
